FAERS Safety Report 7996216-8 (Version None)
Quarter: 2011Q4

REPORT INFORMATION
  Report Type: 
  Country: None (occurrence: None)
  Receive Date: 20111220
  Receipt Date: 20111209
  Transmission Date: 20120403
  Serious: Yes (Hospitalization)
  Sender: FDA-Public Use
  Company Number: US-CELGENEUS-163-20785-11110879

PATIENT
  Sex: Male

DRUGS (16)
  1. SYNTHROID [Concomitant]
     Dosage: 50 MICROGRAM
     Route: 065
  2. PHENERGAN [Concomitant]
     Indication: NAUSEA
     Dosage: 25 MILLIGRAM
     Route: 048
  3. HYDROCHLOROTHIAZIDE [Concomitant]
     Route: 065
  4. SIMVASTATIN [Concomitant]
     Dosage: 40 MILLIGRAM
     Route: 065
  5. LISINOPRIL [Concomitant]
     Dosage: 10 MILLIGRAM
     Route: 065
  6. PHENERGAN [Concomitant]
     Indication: VOMITING
  7. IMODIUM A-D [Concomitant]
     Route: 065
  8. MEGACE ES [Concomitant]
     Dosage: 625/5 CC
     Route: 065
  9. DECADRON [Concomitant]
     Route: 065
     Dates: start: 20110930
  10. THALOMID [Suspect]
     Indication: MULTIPLE MYELOMA
     Dosage: 100 MILLIGRAM
     Route: 048
     Dates: start: 20110930
  11. LORTAB [Concomitant]
     Dosage: 5 MILLIGRAM
     Route: 065
  12. VELCADE [Concomitant]
     Route: 065
     Dates: start: 20110930
  13. DORZOLAMIDE [Concomitant]
     Route: 065
  14. ALPRAZOLAM [Concomitant]
     Dosage: 1 MILLIGRAM
     Route: 065
  15. ALPRAZOLAM [Concomitant]
     Dosage: 2 MILLIGRAM
     Route: 065
     Dates: start: 20111018
  16. NAPROXEN (ALEVE) [Concomitant]
     Indication: PAIN
     Route: 065

REACTIONS (4)
  - HERPES ZOSTER [None]
  - RASH [None]
  - DISORIENTATION [None]
  - FALL [None]
